FAERS Safety Report 7942707-5 (Version None)
Quarter: 2011Q4

REPORT INFORMATION
  Report Type: 
  Country: None (occurrence: None)
  Receive Date: 20111122
  Receipt Date: 20110816
  Transmission Date: 20120403
  Serious: Yes (Other)
  Sender: FDA-Public Use
  Company Number: PHHY2011US52119

PATIENT
  Age: 35 Year
  Sex: Female
  Weight: 54.4316 kg

DRUGS (7)
  1. ACTIQ [Concomitant]
  2. ROXICODONE [Concomitant]
  3. VALIUM [Concomitant]
  4. NUVIGIL [Concomitant]
  5. DURAGESIC-100 [Concomitant]
  6. FIORINAL [Concomitant]
  7. GILENYA [Suspect]
     Indication: MULTIPLE SCLEROSIS
     Dosage: 0.5 MG, QD, ORAL    0.5 MG, QD, ORAL
     Route: 048
     Dates: start: 20110525

REACTIONS (5)
  - MULTIPLE SCLEROSIS RELAPSE [None]
  - VISION BLURRED [None]
  - FATIGUE [None]
  - INSOMNIA [None]
  - ASTHENIA [None]
